FAERS Safety Report 19419446 (Version 2)
Quarter: 2021Q2

REPORT INFORMATION
  Report Type: Spontaneous
  Country: FI (occurrence: FI)
  Receive Date: 20210615
  Receipt Date: 20210617
  Transmission Date: 20210717
  Serious: Yes (Other)
  Sender: FDA-Public Use
  Company Number: FI-JNJFOC-20210612699

PATIENT
  Age: 53 Year
  Sex: Male

DRUGS (3)
  1. DIAPAM [DIAZEPAM] [Concomitant]
  2. SPRAVATO [Suspect]
     Active Substance: ESKETAMINE
     Indication: DEPRESSION
  3. SPRAVATO [Suspect]
     Active Substance: ESKETAMINE
     Indication: SELF-DESTRUCTIVE BEHAVIOUR

REACTIONS (3)
  - Anxiety [Unknown]
  - Hallucination [Unknown]
  - Speech disorder [Unknown]
